FAERS Safety Report 9402291 (Version 1)
Quarter: 2013Q3

REPORT INFORMATION
  Report Type: Spontaneous
  Country: US (occurrence: US)
  Receive Date: 20130716
  Receipt Date: 20130716
  Transmission Date: 20140515
  Serious: No
  Sender: FDA-Public Use
  Company Number: US-009507513-1307USA006050

PATIENT
  Sex: Female

DRUGS (1)
  1. LISINOPRIL [Suspect]

REACTIONS (2)
  - Cough [Unknown]
  - Drug hypersensitivity [Unknown]
